APPROVED DRUG PRODUCT: IBUPROFEN LYSINE
Active Ingredient: IBUPROFEN LYSINE
Strength: EQ 20MG BASE/2ML (EQ 10MG BASE/ML)
Dosage Form/Route: INJECTABLE;INTRAVENOUS
Application: A202402 | Product #001 | TE Code: AP
Applicant: XGEN PHARMACEUTICALS DJB INC
Approved: Mar 30, 2016 | RLD: No | RS: No | Type: RX